FAERS Safety Report 15881262 (Version 4)
Quarter: 2019Q3

REPORT INFORMATION
  Report Type: Report from Study
  Country: BE (occurrence: BE)
  Receive Date: 20190128
  Receipt Date: 20190717
  Transmission Date: 20191004
  Serious: Yes (Hospitalization, Other)
  Sender: FDA-Public Use
  Company Number: BE-SA-2018SA395265

PATIENT
  Age: 51 Year
  Sex: Female

DRUGS (1)
  1. ALEMTUZUMAB [Suspect]
     Active Substance: ALEMTUZUMAB
     Indication: MULTIPLE SCLEROSIS
     Dosage: UNK (STRENGTH: 12MG)
     Route: 041

REACTIONS (8)
  - Hospitalisation [Unknown]
  - Hemiparesis [Unknown]
  - Balance disorder [Unknown]
  - Hypertension [Unknown]
  - Multiple sclerosis [Unknown]
  - Multiple sclerosis relapse [Unknown]
  - Immune thrombocytopenic purpura [Recovered/Resolved]
  - Diplopia [Unknown]

NARRATIVE: CASE EVENT DATE: 20190112
